FAERS Safety Report 24457456 (Version 1)
Quarter: 2024Q4

REPORT INFORMATION
  Report Type: Spontaneous
  Country: US (occurrence: US)
  Receive Date: 20241018
  Receipt Date: 20241018
  Transmission Date: 20250114
  Serious: Yes (Hospitalization)
  Sender: CSL BEHRING
  Company Number: US-BEH-2024171989

PATIENT
  Age: 39 Year
  Sex: Female

DRUGS (7)
  1. HIZENTRA [Suspect]
     Active Substance: HUMAN IMMUNOGLOBULIN G
     Indication: Hypogammaglobulinaemia
     Dosage: 24 G, QOW
     Route: 058
     Dates: start: 202306
  2. HIZENTRA [Suspect]
     Active Substance: HUMAN IMMUNOGLOBULIN G
     Indication: Immunodeficiency common variable
  3. HIZENTRA [Suspect]
     Active Substance: HUMAN IMMUNOGLOBULIN G
     Indication: Hyper IgM syndrome
  4. SILDENAFIL CITRATE [Concomitant]
     Active Substance: SILDENAFIL CITRATE
  5. OPSUMIT [Concomitant]
     Active Substance: MACITENTAN
  6. ORENITRAM [Concomitant]
     Active Substance: TREPROSTINIL
     Dosage: 6 MG, TID
  7. TYVASO DPI [Concomitant]
     Active Substance: TREPROSTINIL

REACTIONS (4)
  - Surgery [Unknown]
  - Nasal congestion [Unknown]
  - Chromaturia [Unknown]
  - Urine odour abnormal [Unknown]

NARRATIVE: CASE EVENT DATE: 20240422
